FAERS Safety Report 9288960 (Version 1)
Quarter: 2013Q2

REPORT INFORMATION
  Report Type: Spontaneous
  Country: ES (occurrence: ES)
  Receive Date: 20130514
  Receipt Date: 20130514
  Transmission Date: 20140414
  Serious: Yes (Other)
  Sender: FDA-Public Use
  Company Number: ES-GLAXOSMITHKLINE-B0890873A

PATIENT
  Age: 42 Year
  Sex: Male

DRUGS (5)
  1. TROBALT [Suspect]
     Indication: EPILEPSY
     Dosage: 50MG THREE TIMES PER DAY
  2. LACOSAMIDE [Concomitant]
  3. LACOSAMIDE [Concomitant]
  4. LAMOTRIGINE [Concomitant]
  5. LEVETIRACETAM [Concomitant]

REACTIONS (3)
  - Urinary tract infection [Recovered/Resolved]
  - Dizziness [Recovered/Resolved]
  - Somnolence [Recovered/Resolved]
